FAERS Safety Report 8223371-7 (Version None)
Quarter: 2012Q1

REPORT INFORMATION
  Report Type: 
  Country: None (occurrence: None)
  Receive Date: 20120313
  Receipt Date: 20111221
  Transmission Date: 20120608
  Serious: Yes (Other)
  Sender: FDA-Public Use
  Company Number: DSA_55420_2012

PATIENT
  Age: 29 Year
  Sex: Male

DRUGS (7)
  1. VALACICLOVIR [Concomitant]
  2. KETOCONAZOLE [Concomitant]
  3. FLAGYL [Suspect]
     Indication: ANAL ABSCESS
     Dosage: (500 MG BID ORAL, 500 MG BID ORAL
     Route: 048
     Dates: start: 20111004, end: 20111007
  4. FLAGYL [Suspect]
     Indication: ANAL ABSCESS
     Dosage: (500 MG BID ORAL, 500 MG BID ORAL
     Route: 048
     Dates: start: 20111024, end: 20111118
  5. BETAMETHASONE DIPROPIONAGE [Concomitant]
  6. ELUDRIL A LA TETRACAINE COLLUTOIRE PRESSURISE [Concomitant]
  7. AUGMENTIN [Concomitant]

REACTIONS (2)
  - AGRANULOCYTOSIS [None]
  - ERYTHEMA [None]
